FAERS Safety Report 8621300-5 (Version None)
Quarter: 2012Q3

REPORT INFORMATION
  Report Type: 
  Country: None (occurrence: None)
  Receive Date: 20120824
  Receipt Date: 20120820
  Transmission Date: 20120928
  Serious: Yes (Hospitalization)
  Sender: FDA-Public Use
  Company Number: JP-ABBOTT-12P-087-0954421-00

PATIENT
  Sex: Female
  Weight: 15.2 kg

DRUGS (9)
  1. TIPEPIDINE HIBENZATE [Concomitant]
     Indication: UPPER RESPIRATORY TRACT INFLAMMATION
     Route: 047
     Dates: start: 20120426, end: 20120617
  2. ONON [Concomitant]
     Indication: BRONCHITIS
     Route: 048
     Dates: start: 20120612, end: 20120614
  3. NIPOLAZIN [Concomitant]
     Indication: RHINITIS ALLERGIC
     Route: 048
     Dates: start: 20120512, end: 20120514
  4. COLISTIMETHATE SODIUM W/ERYTHROMYCIN LACTOBIO [Concomitant]
     Indication: CONJUNCTIVITIS
     Route: 047
     Dates: start: 20120512, end: 20120514
  5. FLOMOX [Concomitant]
     Indication: PNEUMONIA
     Route: 048
     Dates: start: 20120516, end: 20120519
  6. CLARITHROMYCIN [Suspect]
     Indication: PNEUMONIA
     Route: 048
     Dates: start: 20120531, end: 20120611
  7. MUCODYNE [Concomitant]
     Indication: UPPER RESPIRATORY TRACT INFLAMMATION
     Route: 048
     Dates: start: 20120426, end: 20120617
  8. SINGULAIR [Concomitant]
     Indication: BRONCHITIS
     Route: 048
     Dates: start: 20120615, end: 20120617
  9. PERIACTIN [Concomitant]
     Indication: UPPER RESPIRATORY TRACT INFLAMMATION
     Route: 048
     Dates: start: 20120424, end: 20120613

REACTIONS (1)
  - DRUG-INDUCED LIVER INJURY [None]
